FAERS Safety Report 21509324 (Version 3)
Quarter: 2022Q4

REPORT INFORMATION
  Report Type: Report from Study
  Country: NO (occurrence: NO)
  Receive Date: 20221026
  Receipt Date: 20221216
  Transmission Date: 20230113
  Serious: Yes (Hospitalization)
  Sender: FDA-Public Use
  Company Number: NO-ROCHE-3123034

PATIENT
  Age: 66 Year
  Sex: Male
  Weight: 78 kg

DRUGS (18)
  1. LENALIDOMIDE [Suspect]
     Active Substance: LENALIDOMIDE
     Indication: Follicular lymphoma
     Dosage: 20 MILLIGRAM, QD
     Route: 048
     Dates: start: 20211130, end: 20211220
  2. LENALIDOMIDE [Suspect]
     Active Substance: LENALIDOMIDE
     Dosage: 20 MILLIGRAM, QD
     Route: 048
     Dates: start: 20211227, end: 20220116
  3. LENALIDOMIDE [Suspect]
     Active Substance: LENALIDOMIDE
     Dosage: 20 MILLIGRAM, QD
     Route: 048
     Dates: start: 20220124, end: 20220213
  4. LENALIDOMIDE [Suspect]
     Active Substance: LENALIDOMIDE
     Dosage: 20 MILLIGRAM, QD
     Route: 048
     Dates: start: 20220221, end: 20220313
  5. LENALIDOMIDE [Suspect]
     Active Substance: LENALIDOMIDE
     Dosage: 15 MILLIGRAM, QD
     Route: 048
     Dates: start: 20220419, end: 20220509
  6. LENALIDOMIDE [Suspect]
     Active Substance: LENALIDOMIDE
     Dosage: 15 MILLIGRAM, QD
     Route: 048
     Dates: start: 20220516, end: 20220601
  7. RITUXIMAB [Suspect]
     Active Substance: RITUXIMAB
     Indication: Follicular lymphoma
     Dosage: DATE OF LAST DOSE PRIOR TO EVENT: 21/FEB/2022
     Route: 042
     Dates: start: 20211130, end: 20211220
  8. RITUXIMAB [Suspect]
     Active Substance: RITUXIMAB
     Dosage: 375 MILLIGRAM/SQ. METER, Q28D
     Route: 042
     Dates: start: 20211227, end: 20220221
  9. EPCORITAMAB [Suspect]
     Active Substance: EPCORITAMAB
     Indication: Follicular lymphoma
     Dosage: 0.16 MILLIGRAM (PRIMING DOS)
     Route: 058
     Dates: start: 20211130, end: 20211130
  10. EPCORITAMAB [Suspect]
     Active Substance: EPCORITAMAB
     Dosage: 0.8 MILLIGRAM (INTERMEDIATE DOSE;SINGLE)
     Route: 058
     Dates: start: 20211207, end: 20211207
  11. EPCORITAMAB [Suspect]
     Active Substance: EPCORITAMAB
     Dosage: 48 MILLIGRAM, QW (FULL DOSE)
     Route: 058
     Dates: start: 20211214, end: 20220117
  12. EPCORITAMAB [Suspect]
     Active Substance: EPCORITAMAB
     Dosage: 48 MILLIGRAM, Q28D (FULL DOSE)
     Route: 058
     Dates: start: 20220124, end: 20220516
  13. ELIQUIS [Concomitant]
     Active Substance: APIXABAN
     Dosage: UNK
     Route: 065
  14. EBASTINE [Concomitant]
     Active Substance: EBASTINE
     Dosage: UNK
     Route: 065
  15. VALTREX [Concomitant]
     Active Substance: VALACYCLOVIR HYDROCHLORIDE
     Dosage: UNK
     Route: 065
  16. LIVOSTIN [Concomitant]
     Active Substance: LEVOCABASTINE HYDROCHLORIDE
     Dosage: UNK
     Route: 065
  17. VALSARTAN [Concomitant]
     Active Substance: VALSARTAN
     Dosage: UNK
     Route: 065
  18. ASPIRIN\MAGNESIUM OXIDE [Concomitant]
     Active Substance: ASPIRIN\MAGNESIUM OXIDE
     Dosage: UNK
     Route: 065

REACTIONS (2)
  - Ill-defined disorder [Unknown]
  - COVID-19 [Recovered/Resolved]

NARRATIVE: CASE EVENT DATE: 20220601
